FAERS Safety Report 4526145-3 (Version None)
Quarter: 2004Q4

REPORT INFORMATION
  Report Type: 
  Country: None (occurrence: None)
  Receive Date: 20041210
  Receipt Date: 20041206
  Transmission Date: 20050328
  Serious: Yes (Other)
  Sender: FDA-Public Use
  Company Number: 7470

PATIENT
  Age: 22 Year
  Sex: Male
  Weight: 70.3075 kg

DRUGS (2)
  1. SEPTOCAINE [Suspect]
     Indication: LOCAL ANAESTHESIA
     Dosage: 1 CARPULE INJECTED
  2. EPINEPHRINE 1:100,000 [Suspect]
     Indication: NERVE BLOCK

REACTIONS (1)
  - PARAESTHESIA [None]
